FAERS Safety Report 12964772 (Version 1)
Quarter: 2016Q4

REPORT INFORMATION
  Report Type: Report from Study
  Country: None (occurrence: US)
  Receive Date: 20161122
  Receipt Date: 20161122
  Transmission Date: 20170207
  Serious: Yes (Other)
  Sender: FDA-Public Use
  Company Number: US-ABBVIE-16P-163-1784364-00

PATIENT
  Age: 55 Year
  Sex: Male
  Weight: 71 kg

DRUGS (8)
  1. PREZISTA [Suspect]
     Active Substance: DARUNAVIR ETHANOLATE
     Indication: HIV INFECTION
     Route: 048
     Dates: start: 20150225
  2. NORVIR [Suspect]
     Active Substance: RITONAVIR
     Indication: HIV INFECTION
     Route: 048
     Dates: start: 200305, end: 200406
  3. NORVIR [Suspect]
     Active Substance: RITONAVIR
     Route: 048
     Dates: start: 200710, end: 201502
  4. NORVIR [Suspect]
     Active Substance: RITONAVIR
     Route: 048
     Dates: start: 200106, end: 200710
  5. EMTRICITABINE, TENOFOVIR DISOPROXIL FUMARATE [Suspect]
     Active Substance: EMTRICITABINE\TENOFOVIR DISOPROXIL FUMARATE
     Indication: HIV INFECTION
     Route: 048
     Dates: start: 200710, end: 201502
  6. CALCIMAGON D3 [Concomitant]
     Active Substance: CALCIUM\CHOLECALCIFEROL
     Indication: PRODUCT USED FOR UNKNOWN INDICATION
     Dates: start: 20151216
  7. NORVIR [Suspect]
     Active Substance: RITONAVIR
     Route: 048
     Dates: start: 20150225
  8. VITAMINE D [Concomitant]
     Indication: PRODUCT USED FOR UNKNOWN INDICATION
     Dates: start: 20151216

REACTIONS (7)
  - Renal failure [Unknown]
  - Migraine [Unknown]
  - Blood creatinine increased [Not Recovered/Not Resolved]
  - Glycosuria [Unknown]
  - Blood phosphorus abnormal [Unknown]
  - Proteinuria [Unknown]
  - Vitamin D deficiency [Unknown]
